FAERS Safety Report 10228365 (Version 1)
Quarter: 2014Q2

REPORT INFORMATION
  Report Type: Spontaneous
  Country: US (occurrence: None)
  Receive Date: 20140505
  Receipt Date: 20140505
  Transmission Date: 20141212
  Serious: No
  Sender: FDA-Public Use
  Company Number: US-014855

PATIENT
  Age: 45 Year
  Sex: Female
  Weight: 61.24 kg

DRUGS (1)
  1. PICO-SALAX (NOT SPECIFIED) [Suspect]
     Indication: BOWEL PREPARATION
     Dosage: (1ST DOSE IN AFTERNOON)
     Route: 048
     Dates: start: 20140226

REACTIONS (1)
  - Treatment noncompliance [None]
